FAERS Safety Report 6508475-9 (Version None)
Quarter: 2009Q4

REPORT INFORMATION
  Report Type: 
  Country: None (occurrence: None)
  Receive Date: 20091221
  Receipt Date: 20081113
  Transmission Date: 20100525
  Serious: No
  Sender: FDA-Public Use
  Company Number: US-ASTRAZENECA-2008UW25449

PATIENT
  Age: 72 Year
  Sex: Female
  Weight: 81.2 kg

DRUGS (9)
  1. CRESTOR [Suspect]
     Indication: BLOOD CHOLESTEROL INCREASED
     Route: 048
     Dates: start: 20081029
  2. CEOLESRID [Concomitant]
  3. ZETIA [Concomitant]
  4. FOSAMAX [Concomitant]
  5. LEVOXYL [Concomitant]
  6. HYDROCHLOROTHIAZIDE [Concomitant]
  7. CYMBALTA [Concomitant]
  8. COZAAR [Concomitant]
  9. VITAMINS [Concomitant]

REACTIONS (3)
  - EYE IRRITATION [None]
  - SWOLLEN TONGUE [None]
  - TONGUE DISCOLOURATION [None]
